FAERS Safety Report 11271073 (Version 3)
Quarter: 2015Q3

REPORT INFORMATION
  Report Type: Spontaneous
  Country: AR (occurrence: AR)
  Receive Date: 20150714
  Receipt Date: 20150730
  Transmission Date: 20151125
  Serious: Yes (Hospitalization, Other)
  Sender: FDA-Public Use
  Company Number: AR-AMGEN-ARGSP2015068718

PATIENT
  Age: 64 Year
  Sex: Male
  Weight: 80 kg

DRUGS (6)
  1. KYPROLIS [Suspect]
     Active Substance: CARFILZOMIB
     Indication: PLASMA CELL MYELOMA
     Dosage: 20 MG/M2, (DAYS 1, 2, DAYS 8,9, DAYS 15,16, AND EVERY 21 DAYS)
     Route: 042
     Dates: start: 20141209, end: 20150717
  2. PAMIDRONATE [Concomitant]
     Active Substance: PAMIDRONATE DISODIUM
     Dosage: 10 MG X MONTH
     Dates: start: 201309
  3. DEXAMETASON                        /00016001/ [Concomitant]
     Dosage: 4 MG, 20 (DAYS 1,2,8,9,15,16)
     Route: 042
     Dates: start: 20141209, end: 20150616
  4. DEXAMETASON                        /00016001/ [Concomitant]
     Dosage: 4 MG (DAYS 1,2,8,9,15,16)
     Route: 042
     Dates: start: 20150703, end: 20150717
  5. DEXAMETASON                        /00016001/ [Concomitant]
     Indication: PLASMA CELL MYELOMA
     Dosage: 4 X 40 MG X WEEK
     Dates: start: 201209
  6. LENALIDOMIDE [Concomitant]
     Active Substance: LENALIDOMIDE
     Indication: PLASMA CELL MYELOMA
     Dosage: 25 MG/DAY
     Dates: start: 201209

REACTIONS (16)
  - Inferior vena cava syndrome [Unknown]
  - Left atrial dilatation [Unknown]
  - Dilatation ventricular [Unknown]
  - Pulmonary valve incompetence [Unknown]
  - Pulmonary hypertension [Recovering/Resolving]
  - Left ventricular hypertrophy [Unknown]
  - Tricuspid valve incompetence [Unknown]
  - Venous pressure jugular increased [Unknown]
  - Obesity [Unknown]
  - Aortic aneurysm [Unknown]
  - Inferior vena cava dilatation [Unknown]
  - Diastolic dysfunction [Unknown]
  - Mitral valve incompetence [Unknown]
  - Cardiomegaly [Unknown]
  - Dyspnoea [Unknown]
  - Aortic valve sclerosis [Unknown]

NARRATIVE: CASE EVENT DATE: 20150626
